FAERS Safety Report 5302155-3 (Version None)
Quarter: 2007Q2

REPORT INFORMATION
  Report Type: 
  Country: None (occurrence: None)
  Receive Date: 20070416
  Receipt Date: 20070416
  Transmission Date: 20071010
  Serious: Yes (Other)
  Sender: FDA-Public Use
  Company Number: None

PATIENT
  Sex: Male

DRUGS (1)
  1. MORPHINE SULFATE INJ [Suspect]
     Indication: PAIN
     Dosage: 10MG ADMINISTERED ONCE IT
     Route: 037
     Dates: start: 20070128, end: 20070129

REACTIONS (2)
  - DRUG DISPENSING ERROR [None]
  - INCORRECT DOSE ADMINISTERED [None]
